FAERS Safety Report 5597758-5 (Version None)
Quarter: 2007Q4

REPORT INFORMATION
  Report Type: 
  Country: None (occurrence: None)
  Receive Date: 20071221
  Receipt Date: 20071003
  Transmission Date: 20080405
  Serious: Yes (Hospitalization)
  Sender: FDA-Public Use
  Company Number: US-CVT-070165

PATIENT
  Age: 77 Year
  Sex: Male

DRUGS (20)
  1. RANEXA [Suspect]
     Indication: CORONARY ARTERY DISEASE
     Dosage: 500 MG, QD, ORAL ; 500 MG, QD, ORAL
     Route: 048
     Dates: start: 20070725, end: 20070921
  2. RANEXA [Suspect]
     Indication: DIASTOLIC DYSFUNCTION
     Dosage: 500 MG, QD, ORAL ; 500 MG, QD, ORAL
     Route: 048
     Dates: start: 20070725, end: 20070921
  3. RANEXA [Suspect]
     Indication: CORONARY ARTERY DISEASE
     Dosage: 500 MG, QD, ORAL ; 500 MG, QD, ORAL
     Route: 048
     Dates: start: 20070924
  4. RANEXA [Suspect]
     Indication: DIASTOLIC DYSFUNCTION
     Dosage: 500 MG, QD, ORAL ; 500 MG, QD, ORAL
     Route: 048
     Dates: start: 20070924
  5. FUROSEMIDE/00032601/ (FUROSEMIDE) [Concomitant]
  6. LANOXIN [Concomitant]
  7. HYTRIN [Concomitant]
  8. ALLOPURINOL [Concomitant]
  9. COREG [Concomitant]
  10. GLIPIZIDE [Concomitant]
  11. HUMALOG MIX/01293501/ (INSULIN LISPRO) [Concomitant]
  12. LANTUS [Concomitant]
  13. LIPITOR [Concomitant]
  14. INSPRA [Concomitant]
  15. ACCUPRIL [Concomitant]
  16. ASPIRIN/0002701/ (ACETYLSALICYLIC ACID) [Concomitant]
  17. GLUCOPHAGE/00082701/ (METFORMIN) [Concomitant]
  18. ACIPHEX [Concomitant]
  19. POTASSIUM CHLORIDE [Concomitant]
  20. LYRICA [Concomitant]

REACTIONS (5)
  - ATRIAL FIBRILLATION [None]
  - BLOOD URINE PRESENT [None]
  - CARDIOACTIVE DRUG LEVEL INCREASED [None]
  - JOINT SWELLING [None]
  - VISION BLURRED [None]
